FAERS Safety Report 8256518-7 (Version None)
Quarter: 2012Q1

REPORT INFORMATION
  Report Type: 
  Country: None (occurrence: None)
  Receive Date: 20120330
  Receipt Date: 20120319
  Transmission Date: 20120608
  Serious: Yes (Hospitalization, Other)
  Sender: FDA-Public Use
  Company Number: 2012SP014433

PATIENT
  Age: 30 Year
  Sex: Female

DRUGS (4)
  1. AMITRIPTYLINE HCL [Suspect]
     Indication: PRODUCT USED FOR UNKNOWN INDICATION
  2. PARACETAMIL WITH CODEINE PHOSPHATE [Concomitant]
  3. SUMATRIPTAN [Suspect]
     Indication: PRODUCT USED FOR UNKNOWN INDICATION
     Dosage: 50 MG;PRN;PO
     Route: 048
  4. AVANZA (MIRTAZAPINE) [Suspect]
     Indication: PRODUCT USED FOR UNKNOWN INDICATION
     Dosage: 30 MG;QD;PO
     Route: 048
     Dates: start: 20111001

REACTIONS (8)
  - CEREBROVASCULAR SPASM [None]
  - VOMITING [None]
  - PHONOPHOBIA [None]
  - PHOTOPHOBIA [None]
  - NAUSEA [None]
  - CEREBRAL INFARCTION [None]
  - CEREBROVASCULAR ACCIDENT [None]
  - HEADACHE [None]
